FAERS Safety Report 17542396 (Version 6)
Quarter: 2022Q4

REPORT INFORMATION
  Report Type: Report from Study
  Country: CA (occurrence: CA)
  Receive Date: 20200314
  Receipt Date: 20221125
  Transmission Date: 20230112
  Serious: Yes (Other)
  Sender: FDA-Public Use
  Company Number: CA-TAKEDA-2020TUS013737

PATIENT
  Age: 67 Year
  Sex: Male

DRUGS (18)
  1. IXAZOMIB [Suspect]
     Active Substance: IXAZOMIB
     Indication: Plasma cell myeloma
     Dosage: 2.3 MILLIGRAM
     Route: 048
     Dates: start: 20190326
  2. IXAZOMIB [Suspect]
     Active Substance: IXAZOMIB
     Indication: Cardiac amyloidosis
     Dosage: 3 MILLIGRAM
     Route: 048
     Dates: start: 20190423
  3. IXAZOMIB [Suspect]
     Active Substance: IXAZOMIB
     Indication: Renal amyloidosis
     Dosage: 3 MILLIGRAM
     Route: 048
  4. IXAZOMIB [Suspect]
     Active Substance: IXAZOMIB
     Indication: Amyloidosis
  5. ACYCLOVIR                          /00587301/ [Concomitant]
     Dosage: 400 MILLIGRAM, BID
     Route: 065
     Dates: start: 20190326
  6. ACYCLOVIR                          /00587301/ [Concomitant]
     Dosage: 200 MILLIGRAM, BID
     Dates: start: 20190514
  7. ONDANSETRON [Concomitant]
     Active Substance: ONDANSETRON
     Dosage: 8 MILLIGRAM
     Dates: start: 20190326, end: 20200602
  8. VALACYCLOVIR [Concomitant]
     Active Substance: VALACYCLOVIR HYDROCHLORIDE
     Dosage: 500 MILLIGRAM, QD
     Route: 048
     Dates: start: 20190905
  9. VITAMIN D3 [Concomitant]
     Active Substance: CHOLECALCIFEROL
     Dosage: UNK UNK, QD
     Route: 048
  10. ALFACALCIDOL [Concomitant]
     Active Substance: ALFACALCIDOL
     Dosage: 0.25 MILLIGRAM, QD
     Route: 048
  11. EPOETIN ALFA [Concomitant]
     Active Substance: ERYTHROPOIETIN
     Dosage: UNK UNK, 1/WEEK
  12. TAMSULOSIN [Concomitant]
     Active Substance: TAMSULOSIN
     Dosage: 0.4 MILLIGRAM, QD
     Route: 048
  13. ESCITALOPRAM [Concomitant]
     Active Substance: ESCITALOPRAM OXALATE
     Dosage: 10 MILLIGRAM, QD
     Route: 048
  14. CALCIUM CARBONATE [Concomitant]
     Active Substance: CALCIUM CARBONATE
     Dosage: 1500 MILLIGRAM
  15. POLYETHYLENE GLYCOL 3350 [Concomitant]
     Active Substance: POLYETHYLENE GLYCOL 3350
     Route: 048
  16. TYLENOL [Concomitant]
     Active Substance: ACETAMINOPHEN
     Dosage: UNK
     Route: 048
  17. MIDODRINE [Concomitant]
     Active Substance: MIDODRINE
     Dosage: UNK MILLIGRAM
     Route: 065
  18. MIRTAZAPINE [Suspect]
     Active Substance: MIRTAZAPINE
     Indication: Sleep disorder
     Dosage: 30 MILLIGRAM
     Route: 065

REACTIONS (11)
  - Pleural effusion [Unknown]
  - Influenza [Not Recovered/Not Resolved]
  - Urinary retention [Unknown]
  - Orthostatic hypotension [Unknown]
  - Nasal valve collapse [Unknown]
  - Nasal congestion [Unknown]
  - Weight decreased [Unknown]
  - Oedema peripheral [Unknown]
  - Diarrhoea [Unknown]
  - Constipation [Unknown]
  - Off label use [Unknown]

NARRATIVE: CASE EVENT DATE: 20200101
